FAERS Safety Report 5126817-6 (Version None)
Quarter: 2006Q4

REPORT INFORMATION
  Report Type: 
  Country: None (occurrence: None)
  Receive Date: 20061013
  Receipt Date: 20060308
  Transmission Date: 20070319
  Serious: Yes (Other)
  Sender: FDA-Public Use
  Company Number: BR-ROCHE-439600

PATIENT
  Sex: Female
  Weight: 2.4 kg

DRUGS (1)
  1. RIVOTRIL [Suspect]
     Dates: start: 20050515

REACTIONS (6)
  - DRUG EXPOSURE DURING PREGNANCY [None]
  - NORMAL NEWBORN [None]
  - PREGNANCY [None]
  - RETAINED PLACENTA OR MEMBRANES [None]
  - SMALL FOR DATES BABY [None]
  - TREATMENT NONCOMPLIANCE [None]
